FAERS Safety Report 13402641 (Version 10)
Quarter: 2019Q2

REPORT INFORMATION
  Report Type: Report from Study
  Country: US (occurrence: US)
  Receive Date: 20170404
  Receipt Date: 20190624
  Transmission Date: 20190711
  Serious: Yes (Hospitalization)
  Sender: FDA-Public Use
  Company Number: US-ACTELION-A-US2017-148982

PATIENT
  Age: 59 Year
  Sex: Female
  Weight: 53.06 kg

DRUGS (7)
  1. VELETRI [Suspect]
     Active Substance: EPOPROSTENOL
     Indication: PULMONARY ARTERIAL HYPERTENSION
     Dosage: 50 NG/KG, PER MIN
     Route: 042
  2. VELETRI [Suspect]
     Active Substance: EPOPROSTENOL
     Dosage: 8 NG/KG, PER MIN
     Route: 042
  3. XARELTO [Concomitant]
     Active Substance: RIVAROXABAN
  4. VELETRI [Suspect]
     Active Substance: EPOPROSTENOL
     Dosage: 30 NG/KG, PER MIN
     Route: 042
  5. VELETRI [Suspect]
     Active Substance: EPOPROSTENOL
     Dosage: 20 NG/KG, PER MIN
     Route: 042
  6. VELETRI [Suspect]
     Active Substance: EPOPROSTENOL
     Dosage: 10 NG/KG, PER MIN
     Route: 042
  7. LETAIRIS [Concomitant]
     Active Substance: AMBRISENTAN

REACTIONS (29)
  - Headache [Recovered/Resolved]
  - Nasopharyngitis [Unknown]
  - Dyspnoea exertional [Unknown]
  - Oxygen saturation decreased [Unknown]
  - Abdominal cavity drainage [Unknown]
  - Exercise tolerance decreased [Unknown]
  - Renal failure [Unknown]
  - Tongue dry [Unknown]
  - Asthenia [Unknown]
  - Thrombocytopenia [Unknown]
  - Weight decreased [Unknown]
  - Drug dose omission by device [Unknown]
  - Blood potassium increased [Unknown]
  - Fatigue [Unknown]
  - Device occlusion [Unknown]
  - Dyspnoea [Unknown]
  - Chest pain [Unknown]
  - Anaemia [Unknown]
  - Ear discomfort [Unknown]
  - Palpitations [Unknown]
  - Ascites [Unknown]
  - Catheter site pain [Unknown]
  - Vasodilatation [Unknown]
  - Dyspnoea at rest [Unknown]
  - Nausea [Recovered/Resolved]
  - Fluid overload [Unknown]
  - Fluid retention [Unknown]
  - Pain in jaw [Unknown]
  - Vomiting [Recovered/Resolved]

NARRATIVE: CASE EVENT DATE: 20180605
